FAERS Safety Report 20778212 (Version 1)
Quarter: 2022Q2

REPORT INFORMATION
  Report Type: Report from Study
  Country: JP (occurrence: JP)
  Receive Date: 20220503
  Receipt Date: 20220503
  Transmission Date: 20220721
  Serious: Yes (Hospitalization, Disabling)
  Sender: FDA-Public Use
  Company Number: JP-OTSUKA-2022_025515

PATIENT
  Age: 8 Decade
  Sex: Female

DRUGS (1)
  1. ARIPIPRAZOLE [Suspect]
     Active Substance: ARIPIPRAZOLE
     Indication: Bipolar I disorder
     Dosage: UNK
     Route: 030

REACTIONS (5)
  - Decubitus ulcer [Recovering/Resolving]
  - Bedridden [Unknown]
  - Depression [Unknown]
  - Mania [Unknown]
  - Speech disorder [Unknown]
